FAERS Safety Report 19993437 (Version 1)
Quarter: 2021Q4

REPORT INFORMATION
  Report Type: Spontaneous
  Country: US (occurrence: US)
  Receive Date: 20211026
  Receipt Date: 20211026
  Transmission Date: 20220303
  Serious: No
  Sender: FDA-Public Use
  Company Number: US-TEVA-2021-US-1966309

PATIENT
  Age: 33 Year
  Sex: Female

DRUGS (1)
  1. AMPHETAMINE SULFATE\DEXTROAMPHETAMINE [Suspect]
     Active Substance: AMPHETAMINE SULFATE\DEXTROAMPHETAMINE
     Indication: Attention deficit hyperactivity disorder
     Route: 065
     Dates: start: 202109

REACTIONS (6)
  - Panic attack [Unknown]
  - Fear [Unknown]
  - Anxiety [Unknown]
  - Disturbance in attention [Unknown]
  - Product quality issue [Unknown]
  - Drug ineffective [Unknown]

NARRATIVE: CASE EVENT DATE: 20210901
